FAERS Safety Report 5128036-6 (Version None)
Quarter: 2006Q4

REPORT INFORMATION
  Report Type: 
  Country: None (occurrence: None)
  Receive Date: 20061013
  Receipt Date: 20061013
  Transmission Date: 20070319
  Serious: Yes (Hospitalization)
  Sender: FDA-Public Use
  Company Number: None

PATIENT
  Sex: Female
  Weight: 80 kg

DRUGS (2)
  1. MULTIHANCE [Suspect]
     Indication: BREAST DISORDER
     Dosage: 20 ML 1 TIME IV
     Route: 042
     Dates: start: 20060524, end: 20060524
  2. MULTIHANCE [Suspect]
     Indication: NUCLEAR MAGNETIC RESONANCE IMAGING
     Dosage: 20 ML 1 TIME IV
     Route: 042
     Dates: start: 20060524, end: 20060524

REACTIONS (3)
  - PERIORBITAL OEDEMA [None]
  - SWELLING FACE [None]
  - SWOLLEN TONGUE [None]
